FAERS Safety Report 5545398-6 (Version None)
Quarter: 2007Q4

REPORT INFORMATION
  Report Type: 
  Country: None (occurrence: None)
  Receive Date: 20071211
  Receipt Date: 20071205
  Transmission Date: 20080405
  Serious: Yes (Hospitalization, Other)
  Sender: FDA-Public Use
  Company Number: US-ELI_LILLY_AND_COMPANY-US200712001032

PATIENT
  Sex: Male

DRUGS (6)
  1. ZYPREXA [Suspect]
     Indication: PSYCHOTIC DISORDER
     Dates: end: 20070101
  2. ZYPREXA [Suspect]
     Dosage: 30 MG, UNK
     Dates: start: 20070101, end: 20071201
  3. REQUIP [Concomitant]
  4. TRAZODONE HCL [Concomitant]
  5. REMERON [Concomitant]
  6. ZOLOFT [Concomitant]

REACTIONS (2)
  - ELECTROCARDIOGRAM QT PROLONGED [None]
  - HOSPITALISATION [None]
